FAERS Safety Report 11060117 (Version 3)
Quarter: 2015Q3

REPORT INFORMATION
  Report Type: Spontaneous
  Country: US (occurrence: US)
  Receive Date: 20150423
  Receipt Date: 20150915
  Transmission Date: 20151125
  Serious: No
  Sender: FDA-Public Use
  Company Number: US-ASTRAZENECA-2015SE35703

PATIENT
  Sex: Male

DRUGS (9)
  1. ROPINIROLE. [Concomitant]
     Active Substance: ROPINIROLE
  2. LYRICA [Concomitant]
     Active Substance: PREGABALIN
  3. INVOKANA [Concomitant]
     Active Substance: CANAGLIFLOZIN
  4. TAMSULOSIN [Concomitant]
     Active Substance: TAMSULOSIN
  5. LANTUS [Concomitant]
     Active Substance: INSULIN GLARGINE
     Indication: TYPE 2 DIABETES MELLITUS
     Dosage: 56 UNITS,TWICE DAILY
  6. SEROQUEL [Concomitant]
     Active Substance: QUETIAPINE FUMARATE
  7. BYDUREON [Suspect]
     Active Substance: EXENATIDE
     Indication: TYPE 2 DIABETES MELLITUS
     Route: 058
  8. MOTRIN [Concomitant]
     Active Substance: IBUPROFEN
  9. ALEVE [Concomitant]
     Active Substance: NAPROXEN SODIUM

REACTIONS (2)
  - Injection site pain [Unknown]
  - Incorrect dose administered [Unknown]
